FAERS Safety Report 8701868 (Version 2)
Quarter: 2013Q4

REPORT INFORMATION
  Report Type: Spontaneous
  Country: US (occurrence: US)
  Receive Date: 20120803
  Receipt Date: 20131031
  Transmission Date: 20140711
  Serious: No
  Sender: FDA-Public Use
  Company Number: US-009507513-2012SP031878

PATIENT
  Age: 47 Year
  Sex: Female

DRUGS (5)
  1. DULERA [Suspect]
     Dosage: 100 MICROGRAM, UNK
     Route: 055
     Dates: start: 20120507
  2. METOPROLOL [Concomitant]
     Dosage: XR
  3. NITROFURANT [Concomitant]
  4. ALLEGRA [Concomitant]
     Dosage: OIN/ALLEGRA
  5. SYNTHROID [Concomitant]

REACTIONS (2)
  - Myalgia [Unknown]
  - Muscle spasms [Unknown]
